FAERS Safety Report 9861745 (Version 2)
Quarter: 2014Q1

REPORT INFORMATION
  Report Type: Report from Study
  Country: DE (occurrence: DE)
  Receive Date: 20140203
  Receipt Date: 20140221
  Transmission Date: 20141002
  Serious: Yes (Death, Hospitalization)
  Sender: FDA-Public Use
  Company Number: DE-ROCHE-1343359

PATIENT
  Age: 74 Year
  Sex: Female
  Weight: 60 kg

DRUGS (9)
  1. BEVACIZUMAB [Suspect]
     Indication: COLON CANCER
     Route: 042
     Dates: start: 20130904, end: 20131113
  2. FLUOROURACIL [Suspect]
     Indication: COLON CANCER
     Route: 042
     Dates: start: 20130904, end: 20131121
  3. CALCIUM FOLINATE [Suspect]
     Indication: COLON CANCER
     Route: 042
     Dates: start: 20130904, end: 20131121
  4. CARMEN (GERMANY) [Suspect]
     Indication: COLON CANCER
     Route: 065
  5. NOVODIGAL [Concomitant]
     Indication: TACHYARRHYTHMIA
  6. AMIODARONE [Concomitant]
     Indication: ATRIAL FIBRILLATION
     Dosage: CUMULATIVE DOSE 2 G.
     Route: 065
     Dates: start: 20140102
  7. ENALAPRIL [Concomitant]
     Route: 065
  8. METFORMIN [Concomitant]
     Route: 065
  9. MARCUMAR [Concomitant]
     Dosage: ACCORDING TO SCHEDULE
     Route: 065

REACTIONS (6)
  - Left ventricular dysfunction [Fatal]
  - Malignant neoplasm of pleura [Fatal]
  - Urinary tract infection [Recovered/Resolved]
  - Pulmonary embolism [Recovered/Resolved]
  - Thrombosis [Recovered/Resolved]
  - Pneumonia [Recovering/Resolving]
